FAERS Safety Report 9128944 (Version 2)
Quarter: 2013Q4

REPORT INFORMATION
  Report Type: Report from Study
  Country: CA (occurrence: CA)
  Receive Date: 20130228
  Receipt Date: 20131108
  Transmission Date: 20140711
  Serious: Yes (Other)
  Sender: FDA-Public Use
  Company Number: CA-JNJFOC-20130214025

PATIENT
  Sex: Female
  Weight: 103 kg

DRUGS (6)
  1. REMICADE [Suspect]
     Indication: ANKYLOSING SPONDYLITIS
     Route: 042
     Dates: start: 20121210
  2. REMICADE [Suspect]
     Indication: ANKYLOSING SPONDYLITIS
     Route: 042
     Dates: start: 20080228
  3. REMICADE [Suspect]
     Indication: ANKYLOSING SPONDYLITIS
     Route: 042
     Dates: start: 201302
  4. BOTOX [Concomitant]
     Indication: URINARY INCONTINENCE
     Route: 065
  5. CORTISONE [Concomitant]
     Indication: MUSCULOSKELETAL PAIN
     Route: 065
  6. ADVIL [Concomitant]
     Dosage: AS NEEDED
     Route: 048

REACTIONS (4)
  - Urinary tract infection [Unknown]
  - Paraesthesia [Unknown]
  - Chest discomfort [Unknown]
  - Somnolence [Unknown]
